FAERS Safety Report 6050144-6 (Version None)
Quarter: 2009Q1

REPORT INFORMATION
  Report Type: 
  Country: None (occurrence: None)
  Receive Date: 20090121
  Receipt Date: 20090112
  Transmission Date: 20090719
  Serious: Yes (Hospitalization)
  Sender: FDA-Public Use
  Company Number: APP200801234

PATIENT
  Sex: Male

DRUGS (2)
  1. HEPARIN SODIUM INJECTION [Suspect]
     Indication: CATHETERISATION CARDIAC
     Dosage: 3000 USP UNITS, 2 BOLUS DOSES GIVEN, INTRAVENOUS   BOLUS
     Route: 040
     Dates: start: 20081215, end: 20081215
  2. ISOVUE-370 [Suspect]
     Indication: CATHETERISATION CARDIAC
     Dosage: ONCE
     Dates: start: 20081215, end: 20081215

REACTIONS (4)
  - BLOOD PRESSURE DECREASED [None]
  - DRY THROAT [None]
  - DYSPNOEA [None]
  - PHARYNGEAL OEDEMA [None]
